FAERS Safety Report 9095344 (Version 1)
Quarter: 2013Q1

REPORT INFORMATION
  Report Type: Spontaneous
  Country: IN (occurrence: IN)
  Receive Date: 20130220
  Receipt Date: 20130220
  Transmission Date: 20140127
  Serious: Yes (Death, Hospitalization)
  Sender: FDA-Public Use
  Company Number: PHHY2013IN016295

PATIENT
  Age: 69 Year
  Sex: Male

DRUGS (1)
  1. EXELON PATCH [Suspect]
     Indication: DEMENTIA ALZHEIMER^S TYPE
     Dosage: 9.5 MG, DAILY
     Route: 062
     Dates: start: 20121023

REACTIONS (5)
  - Cardiac failure [Fatal]
  - Pneumonia [Unknown]
  - Cough [Unknown]
  - Hyperventilation [Unknown]
  - Renal failure [Unknown]
